FAERS Safety Report 25173934 (Version 2)
Quarter: 2025Q3

REPORT INFORMATION
  Report Type: Spontaneous
  Country: US (occurrence: US)
  Receive Date: 20250408
  Receipt Date: 20250704
  Transmission Date: 20251020
  Serious: No
  Sender: SANOFI AVENTIS
  Company Number: US-SA-2025SA099150

PATIENT
  Age: 77 Year
  Sex: Female

DRUGS (15)
  1. DUPIXENT [Suspect]
     Active Substance: DUPILUMAB
     Indication: Dermatitis atopic
     Dosage: 300 MG, QOW
     Route: 058
  2. METOPROLOL [Concomitant]
     Active Substance: METOPROLOL
  3. LUMIGAN [Concomitant]
     Active Substance: BIMATOPROST
  4. XARELTO [Concomitant]
     Active Substance: RIVAROXABAN
  5. FENOFIBRATE [Concomitant]
     Active Substance: FENOFIBRATE
  6. MYRBETRIQ [Concomitant]
     Active Substance: MIRABEGRON
  7. JARDIANCE [Concomitant]
     Active Substance: EMPAGLIFLOZIN
  8. MOUNJARO [Concomitant]
     Active Substance: TIRZEPATIDE
  9. CALCIUM [Concomitant]
     Active Substance: CALCIUM
  10. OLMESARTAN [Concomitant]
     Active Substance: OLMESARTAN
  11. ATORVASTATIN [Concomitant]
     Active Substance: ATORVASTATIN
  12. ZYRTEC [Concomitant]
     Active Substance: CETIRIZINE HYDROCHLORIDE
  13. POTASSIUM [Concomitant]
     Active Substance: POTASSIUM
  14. COQ10 [CONJUGATED LINOLEIC ACID;LINUM USITATISSIMUM SEED OIL;UBIDECARE [Concomitant]
  15. GABAPENTIN [Concomitant]
     Active Substance: GABAPENTIN

REACTIONS (5)
  - Insomnia [Unknown]
  - Pruritus [Unknown]
  - Drug ineffective [Unknown]
  - Accidental exposure to product [Unknown]
  - Exposure via skin contact [Unknown]
